FAERS Safety Report 14241217 (Version 3)
Quarter: 2018Q1

REPORT INFORMATION
  Report Type: Report from Study
  Country: US (occurrence: US)
  Receive Date: 20171130
  Receipt Date: 20180228
  Transmission Date: 20180508
  Serious: Yes (Other)
  Sender: FDA-Public Use
  Company Number: US-BRISTOL-MYERS SQUIBB COMPANY-BMS-2017-106333

PATIENT
  Sex: Female

DRUGS (1)
  1. NIVOLUMAB [Suspect]
     Active Substance: NIVOLUMAB
     Indication: NON-SMALL CELL LUNG CANCER
     Route: 065

REACTIONS (8)
  - Pancreatitis chronic [Not Recovered/Not Resolved]
  - Nocturia [Unknown]
  - Eye pain [Unknown]
  - Cough [Unknown]
  - Back pain [Unknown]
  - Rash [Unknown]
  - Chronic sinusitis [Unknown]
  - Blister [Unknown]
